FAERS Safety Report 12926667 (Version 3)
Quarter: 2016Q4

REPORT INFORMATION
  Report Type: Spontaneous
  Country: US (occurrence: US)
  Receive Date: 20161108
  Receipt Date: 20161129
  Transmission Date: 20170207
  Serious: No
  Sender: FDA-Public Use
  Company Number: US-ASTRAZENECA-2016SF15483

PATIENT
  Age: 22786 Day
  Sex: Male
  Weight: 54 kg

DRUGS (6)
  1. BRILINTA [Suspect]
     Active Substance: TICAGRELOR
     Indication: STENT PLACEMENT
     Route: 048
     Dates: start: 20161027
  2. ST. JOHNS WORT [Concomitant]
     Active Substance: HYPERICUM PERFORATUM
  3. LOW DOSE ST. JOSEPH^S ASPIRIN [Concomitant]
  4. BRILINTA [Suspect]
     Active Substance: TICAGRELOR
     Indication: ACUTE CORONARY SYNDROME
     Route: 048
     Dates: start: 20161027
  5. PRILOSEC [Suspect]
     Active Substance: OMEPRAZOLE MAGNESIUM
     Route: 048
  6. BRILINTA [Suspect]
     Active Substance: TICAGRELOR
     Indication: MYOCARDIAL INFARCTION
     Route: 048
     Dates: start: 20161027

REACTIONS (30)
  - Faeces discoloured [Unknown]
  - Medical device site bruise [Unknown]
  - Headache [Unknown]
  - Abdominal distension [Unknown]
  - Hypoaesthesia [Unknown]
  - Drug dose omission [Unknown]
  - Oral discomfort [Unknown]
  - Dysuria [Unknown]
  - Peripheral swelling [Unknown]
  - Dizziness [Unknown]
  - Insomnia [Unknown]
  - Feeling abnormal [Unknown]
  - Contusion [Unknown]
  - Haemorrhoids [Unknown]
  - Dry mouth [Unknown]
  - Ageusia [Unknown]
  - Oedema [Unknown]
  - Diarrhoea [Unknown]
  - Anaemia [Unknown]
  - Herpes zoster [Unknown]
  - Gastrooesophageal reflux disease [Unknown]
  - Weight increased [Unknown]
  - Pain in extremity [Unknown]
  - Abdominal discomfort [Unknown]
  - Haemorrhage [Unknown]
  - Dysphagia [Unknown]
  - Anxiety [Unknown]
  - Migraine [Unknown]
  - Nausea [Unknown]
  - Depressed mood [Unknown]

NARRATIVE: CASE EVENT DATE: 20161027
